FAERS Safety Report 16281233 (Version 1)
Quarter: 2019Q2

REPORT INFORMATION
  Report Type: Report from Study
  Country: PY (occurrence: PY)
  Receive Date: 20190507
  Receipt Date: 20190507
  Transmission Date: 20190711
  Serious: Yes (Hospitalization)
  Sender: FDA-Public Use
  Company Number: PY-TEVA-2019-PY-1047033

PATIENT
  Age: 23 Year
  Sex: Female
  Weight: 55 kg

DRUGS (1)
  1. COPAXONE [Suspect]
     Active Substance: GLATIRAMER ACETATE
     Indication: MULTIPLE SCLEROSIS
     Route: 058
     Dates: start: 20170313, end: 201904

REACTIONS (6)
  - Nausea [Recovering/Resolving]
  - Dysgraphia [Recovering/Resolving]
  - Dizziness [Recovering/Resolving]
  - Therapy non-responder [Unknown]
  - Vomiting [Recovering/Resolving]
  - Treatment failure [Unknown]

NARRATIVE: CASE EVENT DATE: 20190426
